FAERS Safety Report 8454090-X (Version None)
Quarter: 2012Q2

REPORT INFORMATION
  Report Type: 
  Country: None (occurrence: None)
  Receive Date: 20120620
  Receipt Date: 20120613
  Transmission Date: 20120825
  Serious: Yes (Hospitalization, Other)
  Sender: FDA-Public Use
  Company Number: FR-ABBOTT-12P-056-0946054-00

PATIENT
  Sex: Male

DRUGS (11)
  1. SPIRONOLACTONE [Suspect]
     Indication: PRODUCT USED FOR UNKNOWN INDICATION
     Route: 048
     Dates: end: 20120403
  2. VOLTAREN [Concomitant]
     Indication: PRODUCT USED FOR UNKNOWN INDICATION
  3. VASTAREL (TRIMETAZIDINE) [Concomitant]
     Indication: PRODUCT USED FOR UNKNOWN INDICATION
     Dates: end: 20120301
  4. TARKA [Suspect]
     Indication: HYPERTENSION
     Route: 048
     Dates: end: 20120403
  5. HYPERIUM (RILMENIDINE) [Concomitant]
     Indication: PRODUCT USED FOR UNKNOWN INDICATION
  6. METFORMIN HCL [Concomitant]
     Indication: PRODUCT USED FOR UNKNOWN INDICATION
     Dates: end: 20120403
  7. IXPRIM (TRAMADOL/PARACETAMOL) [Concomitant]
     Indication: PRODUCT USED FOR UNKNOWN INDICATION
  8. ALTIZIDE [Suspect]
     Indication: PRODUCT USED FOR UNKNOWN INDICATION
     Route: 048
     Dates: end: 20120403
  9. SPIRIVA [Concomitant]
     Indication: PRODUCT USED FOR UNKNOWN INDICATION
  10. PRAZEPAM [Concomitant]
     Indication: PRODUCT USED FOR UNKNOWN INDICATION
  11. OMEPRAZOLE [Concomitant]
     Indication: PRODUCT USED FOR UNKNOWN INDICATION

REACTIONS (15)
  - BRADYCARDIA [None]
  - HYPERKALAEMIA [None]
  - SINUS ARRHYTHMIA [None]
  - PULMONARY ARTERIAL HYPERTENSION [None]
  - AGITATION [None]
  - HYPOPHAGIA [None]
  - RETROGRADE P-WAVES [None]
  - GENERAL PHYSICAL HEALTH DETERIORATION [None]
  - DYSPNOEA [None]
  - BLOOD PRESSURE INCREASED [None]
  - ASTHENIA [None]
  - ANXIETY [None]
  - RENAL FAILURE ACUTE [None]
  - NODAL RHYTHM [None]
  - FLUID OVERLOAD [None]
